FAERS Safety Report 8317543-0 (Version None)
Quarter: 2012Q2

REPORT INFORMATION
  Report Type: 
  Country: None (occurrence: None)
  Receive Date: 20120427
  Receipt Date: 20120426
  Transmission Date: 20120825
  Serious: Yes (Death, Hospitalization, Other)
  Sender: FDA-Public Use
  Company Number: PHFR2012GB002436

PATIENT
  Sex: Male

DRUGS (8)
  1. HALOPERIDOL [Concomitant]
     Indication: SCHIZOPHRENIA
     Dosage: 20 MG, DAILY
     Route: 048
  2. DIAZEPAM [Concomitant]
     Indication: ANXIETY
     Dosage: 15 MG, DAILY
     Route: 048
  3. CLOZARIL [Suspect]
     Dosage: 850 MG, DAILY
     Route: 048
  4. AMISULPRIDE [Concomitant]
     Dosage: 600 MG, DAILY
     Route: 048
  5. VALPROIC ACID [Concomitant]
     Indication: SCHIZOPHRENIA
     Dosage: 65 MG, DAILY
     Route: 048
  6. CLOZARIL [Suspect]
     Indication: SCHIZOPHRENIA
     Route: 048
     Dates: start: 20030909
  7. PAROXETINE [Concomitant]
     Indication: ANXIETY
     Dosage: 10 MG, DAILY
     Route: 048
  8. PAROXETINE [Concomitant]
     Indication: OBESITY

REACTIONS (8)
  - PAIN [None]
  - DYSPNOEA [None]
  - SINUS DISORDER [None]
  - RESPIRATORY DISTRESS [None]
  - CENTRAL OBESITY [None]
  - PULMONARY EMBOLISM [None]
  - FACIAL BONES FRACTURE [None]
  - PNEUMONIA [None]
